FAERS Safety Report 8018864-1 (Version None)
Quarter: 2012Q1

REPORT INFORMATION
  Report Type: 
  Country: None (occurrence: None)
  Receive Date: 20120103
  Receipt Date: 20111219
  Transmission Date: 20120608
  Serious: Yes (Hospitalization)
  Sender: FDA-Public Use
  Company Number: JP-SANOFI-AVENTIS-2011SA072138

PATIENT
  Age: 68 Year
  Sex: Male
  Weight: 67 kg

DRUGS (16)
  1. HEPARIN [Concomitant]
     Dosage: DOSE:12000 UNIT(S)
     Route: 042
     Dates: start: 20081116, end: 20081117
  2. ZANTAC [Concomitant]
     Indication: PROPHYLAXIS
     Dosage: 2.5%
     Dates: start: 20081116, end: 20081116
  3. RABEPRAZOLE SODIUM [Concomitant]
     Route: 048
     Dates: start: 20081116, end: 20081129
  4. LASIX [Concomitant]
     Indication: PROPHYLAXIS
     Route: 048
     Dates: start: 20081119, end: 20081119
  5. PLAVIX [Suspect]
     Route: 065
     Dates: start: 20081117, end: 20081129
  6. KAMAG G [Concomitant]
     Route: 048
     Dates: start: 20081121, end: 20081129
  7. QUINAPRIL HCL [Concomitant]
     Route: 048
     Dates: start: 20081116, end: 20081129
  8. FOSFOMYCIN CALCIUM [Concomitant]
     Indication: PROPHYLAXIS
     Dates: start: 20081116, end: 20081117
  9. LASIX [Concomitant]
     Dates: start: 20081116, end: 20081116
  10. PLAVIX [Suspect]
     Route: 065
     Dates: start: 20081116, end: 20081116
  11. ASPIRIN [Concomitant]
     Route: 048
     Dates: start: 20081116, end: 20081129
  12. CRESTOR [Concomitant]
     Route: 048
     Dates: start: 20081116, end: 20081129
  13. SIGMART [Concomitant]
     Dates: start: 20081116, end: 20081116
  14. SENNOSIDE A [Concomitant]
     Route: 048
     Dates: start: 20081128, end: 20081129
  15. SIGMART [Concomitant]
     Route: 048
     Dates: start: 20081116, end: 20081129
  16. PANTOSIN [Concomitant]
     Route: 048
     Dates: start: 20081121, end: 20081129

REACTIONS (2)
  - DRUG INEFFECTIVE [None]
  - ARTERIAL RESTENOSIS [None]
